FAERS Safety Report 18011629 (Version 4)
Quarter: 2025Q2

REPORT INFORMATION
  Report Type: Report from Study
  Country: US (occurrence: US)
  Receive Date: 20200713
  Receipt Date: 20250428
  Transmission Date: 20250716
  Serious: No
  Sender: TAKEDA
  Company Number: US-SHIRE-US202022279

PATIENT
  Age: 60 Year
  Sex: Female
  Weight: 93 kg

DRUGS (40)
  1. HUMAN IMMUNOGLOBULIN G\HYALURONIDASE RECOMBINANT HUMAN [Suspect]
     Active Substance: HUMAN IMMUNOGLOBULIN G\HYALURONIDASE (HUMAN RECOMBINANT)
     Indication: Congenital hypogammaglobulinaemia
     Dosage: 20 GRAM, 1/WEEK
     Dates: start: 20161123
  2. HUMAN IMMUNOGLOBULIN G\HYALURONIDASE RECOMBINANT HUMAN [Suspect]
     Active Substance: HUMAN IMMUNOGLOBULIN G\HYALURONIDASE (HUMAN RECOMBINANT)
     Indication: Selective IgA immunodeficiency
     Dosage: 20 GRAM, 1/WEEK
     Dates: start: 20161126
  3. HUMAN IMMUNOGLOBULIN G\HYALURONIDASE RECOMBINANT HUMAN [Suspect]
     Active Substance: HUMAN IMMUNOGLOBULIN G\HYALURONIDASE (HUMAN RECOMBINANT)
     Indication: Immunodeficiency
  4. BENADRYL [Suspect]
     Active Substance: DIPHENHYDRAMINE HYDROCHLORIDE
     Indication: Product used for unknown indication
  5. AMOXICILLIN [Suspect]
     Active Substance: AMOXICILLIN
     Indication: Product used for unknown indication
  6. DIPHENHYDRAMINE [Concomitant]
     Active Substance: DIPHENHYDRAMINE
  7. ATROVENT HFA [Concomitant]
     Active Substance: IPRATROPIUM BROMIDE
  8. ZOLPIDEM TARTRATE [Concomitant]
     Active Substance: ZOLPIDEM TARTRATE
  9. ASMANEX HFA [Concomitant]
     Active Substance: MOMETASONE FUROATE
  10. VITAMIN D3 [Concomitant]
     Active Substance: CHOLECALCIFEROL
  11. EPINEPHRINE [Concomitant]
     Active Substance: EPINEPHRINE
  12. LEVOTHYROXINE SODIUM [Concomitant]
     Active Substance: LEVOTHYROXINE SODIUM
  13. CYTOMEL [Concomitant]
     Active Substance: LIOTHYRONINE SODIUM
  14. DUAVEE [Concomitant]
     Active Substance: BAZEDOXIFENE ACETATE\ESTROGENS, CONJUGATED
  15. DULOXETINE HYDROCHLORIDE [Concomitant]
     Active Substance: DULOXETINE HYDROCHLORIDE
  16. CHONDROITIN SULFATE A\GLUCOSAMINE [Concomitant]
     Active Substance: CHONDROITIN SULFATE A\GLUCOSAMINE
  17. ACETAMINOPHEN [Concomitant]
     Active Substance: ACETAMINOPHEN
  18. AZELASTINE HYDROCHLORIDE [Concomitant]
     Active Substance: AZELASTINE HYDROCHLORIDE
  19. SODIUM CHLORIDE [Concomitant]
     Active Substance: SODIUM CHLORIDE
  20. FLONASE SENSIMIST ALLERGY RELIEF [Concomitant]
     Active Substance: FLUTICASONE FUROATE
  21. PHENYLEPHRINE HYDROCHLORIDE [Concomitant]
     Active Substance: PHENYLEPHRINE HYDROCHLORIDE
  22. ADVAIR HFA [Concomitant]
     Active Substance: FLUTICASONE PROPIONATE\SALMETEROL XINAFOATE
  23. XYZAL [Concomitant]
     Active Substance: LEVOCETIRIZINE DIHYDROCHLORIDE
  24. MAGNESIUM [Concomitant]
     Active Substance: MAGNESIUM
  25. LIDOCAINE [Concomitant]
     Active Substance: LIDOCAINE
  26. MUCINEX [Concomitant]
     Active Substance: GUAIFENESIN
  27. CYMBALTA [Concomitant]
     Active Substance: DULOXETINE HYDROCHLORIDE
  28. ALLEGRA [Concomitant]
     Active Substance: FEXOFENADINE HYDROCHLORIDE
  29. SINGULAIR [Concomitant]
     Active Substance: MONTELUKAST SODIUM
  30. AZELASTINE [Concomitant]
     Active Substance: AZELASTINE
  31. DULOXETINE [Concomitant]
     Active Substance: DULOXETINE
  32. VITAMIN C [Concomitant]
     Active Substance: ASCORBIC ACID
  33. LACTOBACILLUS ACIDOPHILUS [Concomitant]
     Active Substance: LACTOBACILLUS ACIDOPHILUS
  34. NASACORT [Concomitant]
     Active Substance: TRIAMCINOLONE ACETONIDE
  35. CLONAZEPAM [Concomitant]
     Active Substance: CLONAZEPAM
  36. ZOLPIDEM [Concomitant]
     Active Substance: ZOLPIDEM TARTRATE
  37. SUDAFED [Concomitant]
     Active Substance: PSEUDOEPHEDRINE HYDROCHLORIDE
  38. ZOFRAN [Concomitant]
     Active Substance: ONDANSETRON HYDROCHLORIDE
  39. DIPHENHYDRAMINE HYDROCHLORIDE [Concomitant]
     Active Substance: DIPHENHYDRAMINE HYDROCHLORIDE
  40. ATROVENT [Concomitant]
     Active Substance: IPRATROPIUM BROMIDE

REACTIONS (19)
  - Upper respiratory tract infection [Unknown]
  - Seasonal allergy [Unknown]
  - Sinusitis [Recovered/Resolved]
  - Urinary tract infection [Recovering/Resolving]
  - Pain [Unknown]
  - Gastroenteritis viral [Unknown]
  - Ear infection [Unknown]
  - Insurance issue [Unknown]
  - Infection [Recovered/Resolved]
  - Influenza [Unknown]
  - Infusion related reaction [Unknown]
  - Product use issue [Unknown]
  - Product dose omission issue [Unknown]
  - Illness [Unknown]
  - Asthma [Unknown]
  - Malaise [Unknown]
  - Pruritus allergic [Unknown]
  - Infusion site discomfort [Unknown]
  - Infusion site pruritus [Unknown]

NARRATIVE: CASE EVENT DATE: 20230901
